FAERS Safety Report 7978260-X (Version None)
Quarter: 2011Q4

REPORT INFORMATION
  Report Type: 
  Country: None (occurrence: None)
  Receive Date: 20111129
  Receipt Date: 20110624
  Transmission Date: 20120403
  Serious: No
  Sender: FDA-Public Use
  Company Number: PHHY2011US59396

PATIENT
  Sex: Female
  Weight: 13.1543 kg

DRUGS (5)
  1. XOPENEX [Concomitant]
  2. AFINITOR [Suspect]
     Indication: TUBEROUS SCLEROSIS
     Dosage: 5 MG, DAILY, ORAL
     Route: 048
     Dates: start: 20110421
  3. PULMICORT [Concomitant]
  4. TAURINE (TAURINE) [Concomitant]
  5. KEPPRA [Concomitant]

REACTIONS (3)
  - ORAL DISCOMFORT [None]
  - ACNE [None]
  - CONTUSION [None]
